FAERS Safety Report 21770465 (Version 1)
Quarter: 2022Q4

REPORT INFORMATION
  Report Type: Spontaneous
  Country: US (occurrence: US)
  Receive Date: 20221223
  Receipt Date: 20221223
  Transmission Date: 20230113
  Serious: Yes (Hospitalization, Other)
  Sender: FDA-Public Use
  Company Number: US-APOTEX-2022AP016937

PATIENT
  Sex: Male

DRUGS (1)
  1. BUPROPION HYDROCHLORIDE [Suspect]
     Active Substance: BUPROPION HYDROCHLORIDE
     Indication: Euphoric mood
     Dosage: UNK
     Route: 065

REACTIONS (7)
  - Hallucination, auditory [Unknown]
  - Drug abuse [Unknown]
  - Hallucination, visual [Recovered/Resolved]
  - Suicidal ideation [Recovered/Resolved]
  - Hyponatraemia [Recovered/Resolved]
  - Substance-induced psychotic disorder [Unknown]
  - Suicide attempt [Unknown]
